FAERS Safety Report 16568775 (Version 2)
Quarter: 2019Q3

REPORT INFORMATION
  Report Type: Report from Study
  Country: NL (occurrence: NL)
  Receive Date: 20190713
  Receipt Date: 20190801
  Transmission Date: 20191004
  Serious: Yes (Hospitalization, Other)
  Sender: FDA-Public Use
  Company Number: NL-AMGEN-NLDSL2019091126

PATIENT
  Age: 74 Year
  Sex: Female

DRUGS (15)
  1. BUDESONIDE. [Concomitant]
     Active Substance: BUDESONIDE
     Dosage: UNK UNK (400UG/DO FL 200DO TURBUHALER), QOD
  2. CALCIUM CARBONATE W/COLECALCIFEROL [Concomitant]
     Active Substance: CALCIUM CARBONATE\CHOLECALCIFEROL
     Dosage: 2,5G/880IE (1000MG CA), QD
  3. LETROZOL [Concomitant]
     Active Substance: LETROZOLE
     Dosage: 2.5 MILLIGRAM, QD
  4. METFORMINE [METFORMIN] [Concomitant]
     Active Substance: METFORMIN HYDROCHLORIDE
     Dosage: 850 MILLIGRAM, 3D1T
  5. TOLBUTAMIDE. [Concomitant]
     Active Substance: TOLBUTAMIDE
     Dosage: 500 MILLIGRAM, 2D0,5T
  6. ISOPHANE INSULINE [Concomitant]
     Dosage: UNK (300IE=3ML (100IE/ML)
  7. GLICLAZIDE [Concomitant]
     Active Substance: GLICLAZIDE
     Dosage: 80 MILLIGRAM, BID
  8. XGEVA [Suspect]
     Active Substance: DENOSUMAB
     Indication: PROPHYLAXIS
     Dosage: 120 MILLIGRAM PER MILLILITRE (70MG/ML FLACON 1,7ML / 1), Q4WK
     Route: 065
     Dates: start: 20190321
  9. VASELINE [PARAFFIN] [Concomitant]
     Active Substance: PARAFFIN
     Dosage: 500/500MG/G
  10. TRIAMCINOLONACETONIDE [Concomitant]
     Active Substance: TRIAMCINOLONE ACETONIDE
     Dosage: 1 MILLIGRAM PER GRAM, 2D
  11. AMLODIPINE [Concomitant]
     Active Substance: AMLODIPINE BESYLATE
     Dosage: 5 MILLIGRAM, QD
  12. MACROGOL [Concomitant]
     Active Substance: POLYETHYLENE GLYCOLS
     Dosage: 0-2D1S
  13. NAPROXEN. [Concomitant]
     Active Substance: NAPROXEN
     Dosage: 250 MILLIGRAM, TID
  14. VITAMIN K [Concomitant]
     Active Substance: PHYTONADIONE
     Dosage: UNK, BID
  15. NUTRIDRINK [Concomitant]
     Active Substance: CARBOHYDRATES\FATTY ACIDS\MINERALS\PROTEIN\VITAMINS
     Dosage: UNK UNK, BID

REACTIONS (2)
  - Breast mass [Unknown]
  - Product dose omission [Unknown]
